FAERS Safety Report 5499478-4 (Version None)
Quarter: 2007Q4

REPORT INFORMATION
  Report Type: 
  Country: None (occurrence: None)
  Receive Date: 20071026
  Receipt Date: 20071018
  Transmission Date: 20080405
  Serious: Yes (Hospitalization)
  Sender: FDA-Public Use
  Company Number: SE-PURDUE-GBR_2007_0003380

PATIENT
  Age: 86 Year
  Sex: Male

DRUGS (6)
  1. OXYCONTIN [Suspect]
     Indication: BACK PAIN
     Route: 048
     Dates: start: 20070625
  2. DELTISON [Suspect]
     Indication: BACK PAIN
     Route: 065
     Dates: start: 20070625
  3. SOTALOL HYDROCHLORIDE [Suspect]
     Indication: DRUG USE FOR UNKNOWN INDICATION
     Route: 065
  4. IMPUGAN [Concomitant]
     Dosage: 40 MG, UNK
     Route: 065
  5. MONOKET [Concomitant]
     Dosage: 20 MG, UNK
     Route: 065
  6. LAKTULOSE ^DAK^ [Concomitant]
     Route: 065

REACTIONS (5)
  - CONFUSIONAL STATE [None]
  - DIABETES MELLITUS [None]
  - ELECTROCARDIOGRAM QT PROLONGED [None]
  - HALLUCINATION, AUDITORY [None]
  - HALLUCINATION, VISUAL [None]
